FAERS Safety Report 15669414 (Version 2)
Quarter: 2019Q1

REPORT INFORMATION
  Report Type: Spontaneous
  Country: US (occurrence: US)
  Receive Date: 20181129
  Receipt Date: 20190107
  Transmission Date: 20190417
  Serious: No
  Sender: FDA-Public Use
  Company Number: US-ASTRAZENECA-2018SF44806

PATIENT
  Sex: Female
  Weight: 65.8 kg

DRUGS (1)
  1. TUDORZA PRESSAIR [Suspect]
     Active Substance: ACLIDINIUM BROMIDE
     Indication: CHRONIC OBSTRUCTIVE PULMONARY DISEASE
     Route: 055
     Dates: start: 2014

REACTIONS (4)
  - Visual impairment [Not Recovered/Not Resolved]
  - Product use complaint [Unknown]
  - Device failure [Unknown]
  - Chronic obstructive pulmonary disease [Not Recovered/Not Resolved]
